FAERS Safety Report 7584804-2 (Version None)
Quarter: 2011Q2

REPORT INFORMATION
  Report Type: 
  Country: None (occurrence: None)
  Receive Date: 20110630
  Receipt Date: 20110623
  Transmission Date: 20111010
  Serious: Yes (Other)
  Sender: FDA-Public Use
  Company Number: PHHY2011CA55570

PATIENT
  Sex: Female

DRUGS (2)
  1. MORPHINE [Concomitant]
  2. ZOLEDRONIC ACID [Suspect]
     Indication: OSTEOPOROSIS
     Route: 017
     Dates: start: 20100630

REACTIONS (2)
  - PAIN [None]
  - SPINAL FRACTURE [None]
